FAERS Safety Report 22520050 (Version 5)
Quarter: 2025Q2

REPORT INFORMATION
  Report Type: Spontaneous
  Country: US (occurrence: US)
  Receive Date: 20230605
  Receipt Date: 20250414
  Transmission Date: 20250717
  Serious: Yes (Death, Hospitalization, Other)
  Sender: OTSUKA
  Company Number: US-OTSUKA-2023_014597

PATIENT
  Age: 82 Year
  Sex: Male

DRUGS (23)
  1. REXULTI [Suspect]
     Active Substance: BREXPIPRAZOLE
     Indication: Adjuvant therapy
     Dosage: 1 MG, QD (FOR 90 DAYS)
     Route: 065
     Dates: start: 20191029
  2. REXULTI [Suspect]
     Active Substance: BREXPIPRAZOLE
     Dosage: 0.5 MG, QD (AT BEDTIME)
     Route: 065
     Dates: start: 20210605
  3. REXULTI [Suspect]
     Active Substance: BREXPIPRAZOLE
     Dosage: 1 MG, QD
     Route: 065
     Dates: start: 20210810
  4. ABILIFY [Suspect]
     Active Substance: ARIPIPRAZOLE
     Indication: Product used for unknown indication
     Route: 065
  5. ABILIFY [Suspect]
     Active Substance: ARIPIPRAZOLE
     Dosage: 4 MG A DAY
     Route: 065
  6. ATIVAN [Suspect]
     Active Substance: LORAZEPAM
     Indication: Dyspnoea
     Route: 065
  7. ATIVAN [Suspect]
     Active Substance: LORAZEPAM
     Route: 065
  8. ATIVAN [Suspect]
     Active Substance: LORAZEPAM
     Route: 042
  9. HYDROXYZINE [Concomitant]
     Active Substance: HYDROXYZINE HYDROCHLORIDE
     Indication: Dyspnoea
     Route: 065
  10. HYDROXYZINE [Concomitant]
     Active Substance: HYDROXYZINE HYDROCHLORIDE
     Indication: Anxiety
  11. VENLAFAXINE [Concomitant]
     Active Substance: VENLAFAXINE HYDROCHLORIDE
     Indication: Product used for unknown indication
     Dosage: 75 MG, TID
     Route: 065
  12. VENLAFAXINE [Concomitant]
     Active Substance: VENLAFAXINE HYDROCHLORIDE
     Dosage: 150 MG, BID
     Route: 065
  13. ZOLOFT [Concomitant]
     Active Substance: SERTRALINE HYDROCHLORIDE
     Indication: Product used for unknown indication
     Route: 065
  14. TRINTELLIX [Concomitant]
     Active Substance: VORTIOXETINE HYDROBROMIDE
     Indication: Product used for unknown indication
     Dosage: UPTO 20 MG A DAY
     Route: 065
  15. BUSPAR [Concomitant]
     Active Substance: BUSPIRONE HYDROCHLORIDE
     Indication: Product used for unknown indication
     Dosage: 5 MG BID
     Route: 065
  16. TIAGABINE [Concomitant]
     Active Substance: TIAGABINE
     Indication: Product used for unknown indication
     Dosage: 4 MG, TWICE A DAY
     Route: 065
  17. TIAGABINE [Concomitant]
     Active Substance: TIAGABINE
     Dosage: 6 MG, QD
     Route: 065
  18. TIAGABINE [Concomitant]
     Active Substance: TIAGABINE
     Dosage: 2 MG, QD (BED TIME)
     Route: 065
  19. BUSPIRONE [Concomitant]
     Active Substance: BUSPIRONE HYDROCHLORIDE
     Indication: Product used for unknown indication
     Dosage: 10 MG BID
     Route: 065
  20. ACRIVASTINE [Concomitant]
     Active Substance: ACRIVASTINE
     Indication: Paraesthesia
     Route: 065
  21. METOPROLOL [Concomitant]
     Active Substance: METOPROLOL
     Indication: Product used for unknown indication
     Dosage: 100 MG BID
     Route: 065
  22. QUETIAPINE [Concomitant]
     Active Substance: QUETIAPINE
     Indication: Product used for unknown indication
     Dosage: 50 MG BID
     Route: 065
  23. ARANESP [Concomitant]
     Active Substance: DARBEPOETIN ALFA
     Indication: Myelodysplastic syndrome
     Route: 065

REACTIONS (12)
  - Infection [Fatal]
  - Pancytopenia [Unknown]
  - Myelodysplastic syndrome [Unknown]
  - Anger [Unknown]
  - Weight decreased [Unknown]
  - Dyspnoea [Unknown]
  - Hypersomnia [Unknown]
  - Fall [Unknown]
  - Urticaria [Unknown]
  - Anxiety [Unknown]
  - Fatigue [Unknown]
  - Restlessness [Unknown]

NARRATIVE: CASE EVENT DATE: 20220603
